FAERS Safety Report 7979287-4 (Version None)
Quarter: 2011Q4

REPORT INFORMATION
  Report Type: 
  Country: None (occurrence: None)
  Receive Date: 20111214
  Receipt Date: 20111207
  Transmission Date: 20120403
  Serious: Yes (Life-Threatening, Other)
  Sender: FDA-Public Use
  Company Number: RU-JNJFOC-20111200384

PATIENT
  Sex: Female
  Weight: 89 kg

DRUGS (5)
  1. DIMEDROL [Concomitant]
     Indication: ANAESTHESIA
     Route: 030
     Dates: start: 20111114, end: 20111118
  2. INVANZ [Concomitant]
     Indication: INFECTION PROPHYLAXIS
     Route: 030
     Dates: start: 20111114, end: 20111118
  3. XARELTO [Suspect]
     Indication: THROMBOSIS PROPHYLAXIS
     Route: 048
     Dates: start: 20111113, end: 20111125
  4. KETOPROFEN [Suspect]
     Indication: ANAESTHESIA
     Route: 030
  5. ANALGIN [Concomitant]
     Indication: ANAESTHESIA
     Route: 030
     Dates: start: 20111114, end: 20111118

REACTIONS (2)
  - MALABSORPTION [None]
  - THROMBOPHLEBITIS SUPERFICIAL [None]
